FAERS Safety Report 21056785 (Version 1)
Quarter: 2022Q3

REPORT INFORMATION
  Report Type: Spontaneous
  Country: GB (occurrence: GB)
  Receive Date: 20220708
  Receipt Date: 20220708
  Transmission Date: 20221027
  Serious: No
  Sender: FDA-Public Use
  Company Number: None

PATIENT
  Sex: Female

DRUGS (4)
  1. IBUPROFEN [Suspect]
     Active Substance: IBUPROFEN
     Indication: Back pain
     Dosage: UNK
     Route: 065
  2. ACETAMINOPHEN [Suspect]
     Active Substance: ACETAMINOPHEN
     Indication: Back pain
     Dosage: UNK
     Route: 065
  3. SUBUTEX [Suspect]
     Active Substance: BUPRENORPHINE HYDROCHLORIDE
     Indication: Drug dependence
     Dosage: 8 MILLIGRAM
     Route: 060
     Dates: start: 2014
  4. SUBUTEX [Suspect]
     Active Substance: BUPRENORPHINE HYDROCHLORIDE
     Dosage: 2.8 MILLIGRAM, QD (TRYING TO REDUCE DOSAGE)
     Route: 060

REACTIONS (21)
  - Blood glucose decreased [Unknown]
  - Alopecia [Unknown]
  - Blood prolactin increased [Unknown]
  - Dental discomfort [Unknown]
  - Premature menopause [Recovered/Resolved]
  - Tooth loss [Unknown]
  - Weight abnormal [Unknown]
  - Intervertebral disc protrusion [Not Recovered/Not Resolved]
  - Back pain [Not Recovered/Not Resolved]
  - Pain in extremity [Not Recovered/Not Resolved]
  - Hypoaesthesia [Unknown]
  - Abdominal discomfort [Unknown]
  - Anxiety [Unknown]
  - Decreased appetite [Unknown]
  - Drug withdrawal syndrome [Unknown]
  - Flushing [Unknown]
  - Hyperhidrosis [Recovered/Resolved]
  - Hypotension [Unknown]
  - Insomnia [Not Recovered/Not Resolved]
  - Lip swelling [Unknown]
  - Inappropriate schedule of product discontinuation [Unknown]
